FAERS Safety Report 8096487 (Version 4)
Quarter: 2017Q1

REPORT INFORMATION
  Report Type: Spontaneous
  Country: US (occurrence: US)
  Receive Date: 20110818
  Receipt Date: 20170308
  Transmission Date: 20170429
  Serious: Yes (Other)
  Sender: FDA-Public Use
  Company Number: US-GLAXOSMITHKLINE-A0930596A

PATIENT
  Age: 64 Year
  Sex: Male

DRUGS (9)
  1. ADVAIR HFA [Suspect]
     Active Substance: FLUTICASONE PROPIONATE\SALMETEROL XINAFOATE
     Indication: ASTHMA
     Dosage: 1 PUFF(S), BID
     Route: 055
  2. PROVENTIL [Concomitant]
     Active Substance: ALBUTEROL
  3. NEXIUM [Concomitant]
     Active Substance: ESOMEPRAZOLE MAGNESIUM
  4. PRILOSEC [Concomitant]
     Active Substance: OMEPRAZOLE MAGNESIUM
  5. FLUTICASONE NASAL [Concomitant]
     Active Substance: FLUTICASONE
  6. LABETALOL [Concomitant]
     Active Substance: LABETALOL\LABETALOL HYDROCHLORIDE
  7. FLUTICASONE. [Concomitant]
     Active Substance: FLUTICASONE
  8. ADVAIR HFA [Suspect]
     Active Substance: FLUTICASONE PROPIONATE\SALMETEROL XINAFOATE
     Indication: SARCOIDOSIS
     Dosage: 1 PUFF(S), UNK
     Route: 055
  9. DICLOFEN [Concomitant]
     Active Substance: DICLOFENAC SODIUM

REACTIONS (5)
  - Product use issue [Unknown]
  - Product quality issue [Unknown]
  - Asthma [Recovering/Resolving]
  - Drug ineffective [Recovered/Resolved]
  - Adverse reaction [Recovered/Resolved]

NARRATIVE: CASE EVENT DATE: 20110523
